FAERS Safety Report 9162329 (Version 2)
Quarter: 2013Q2

REPORT INFORMATION
  Report Type: Spontaneous
  Country: US (occurrence: US)
  Receive Date: 20130314
  Receipt Date: 20130610
  Transmission Date: 20140414
  Serious: No
  Sender: FDA-Public Use
  Company Number: US-PFIZER INC-2013082595

PATIENT
  Age: 76 Year
  Sex: Female

DRUGS (1)
  1. FLAGYL [Suspect]
     Dosage: 1 DF, SINGLE

REACTIONS (5)
  - Drug hypersensitivity [Unknown]
  - Vomiting [Unknown]
  - Dyspnoea [Unknown]
  - Chest pain [Unknown]
  - Periodontal disease [Unknown]
